FAERS Safety Report 8621740-4 (Version None)
Quarter: 2012Q3

REPORT INFORMATION
  Report Type: 
  Country: None (occurrence: None)
  Receive Date: 20120825
  Receipt Date: 20120822
  Transmission Date: 20120928
  Serious: Yes (Death)
  Sender: FDA-Public Use
  Company Number: JP-009507513-1208JPN009388

PATIENT

DRUGS (2)
  1. TEMODAL [Suspect]
     Indication: GLIOBLASTOMA MULTIFORME
     Dosage: 200 MG/M2, QD
     Route: 042
     Dates: start: 20100810, end: 20100814
  2. TEMODAL [Suspect]
     Dosage: 200 MG/M2, QD
     Route: 042
     Dates: start: 20100906, end: 20100910

REACTIONS (1)
  - DEATH [None]
